FAERS Safety Report 21695764 (Version 1)
Quarter: 2022Q4

REPORT INFORMATION
  Report Type: Spontaneous
  Country: US (occurrence: None)
  Receive Date: 20221206
  Receipt Date: 20221206
  Transmission Date: 20230113
  Serious: No
  Sender: FDA-Public Use
  Company Number: None

PATIENT
  Age: 52 Year
  Sex: Female
  Weight: 106.0 kg

DRUGS (28)
  1. CAPECITABINE [Suspect]
     Active Substance: CAPECITABINE
     Indication: Appendix cancer
     Dosage: FREQUENCY : TWICE A DAY;?
     Route: 048
  2. ALKA-SELTZER [Concomitant]
     Active Substance: ANHYDROUS CITRIC ACID\ASPIRIN\SODIUM BICARBONATE
  3. AMTRIPTYLINE [Concomitant]
  4. ASPIRIN [Concomitant]
     Active Substance: ASPIRIN
  5. BACLOFEN [Concomitant]
     Active Substance: BACLOFEN
  6. BEVACIZUMAB [Concomitant]
     Active Substance: BEVACIZUMAB
  7. CBD4 FREEZE PUMP [Concomitant]
  8. CITALOPRAM HYDROBROMIDE [Concomitant]
  9. COENZYME Q10 [Concomitant]
     Active Substance: DIETARY SUPPLEMENT\UBIDECARENONE
  10. VITAMIN C [Concomitant]
     Active Substance: ASCORBIC ACID
  11. DILODO-L-THYRONINE 3 [Concomitant]
  12. EPINEPHRINE [Concomitant]
     Active Substance: EPINEPHRINE
  13. ETHYL ALCOHOL [Concomitant]
  14. FAMOTIDINE [Concomitant]
     Active Substance: FAMOTIDINE
  15. FERROUS SULFATE [Concomitant]
     Active Substance: FERROUS SULFATE
  16. GLUCOSAMINE [Concomitant]
  17. VITAMINS [Concomitant]
     Active Substance: VITAMINS
  18. HYDROXYZINE [Concomitant]
     Active Substance: HYDROXYZINE HYDROCHLORIDE
  19. IMODIUM A-D [Concomitant]
     Active Substance: LOPERAMIDE HYDROCHLORIDE
  20. LIDOCAINE\PRILOCAINE [Concomitant]
     Active Substance: LIDOCAINE\PRILOCAINE
  21. MOMETASONE [Concomitant]
     Active Substance: MOMETASONE
  22. NORCO [Concomitant]
     Active Substance: ACETAMINOPHEN\HYDROCODONE BITARTRATE
  23. SODIUM CHLORIDE [Concomitant]
     Active Substance: SODIUM CHLORIDE
  24. VITAMIN D3 [Concomitant]
     Active Substance: CHOLECALCIFEROL
  25. VENTOLIN [Concomitant]
     Active Substance: ALBUTEROL SULFATE
  26. XANAX [Concomitant]
     Active Substance: ALPRAZOLAM
  27. ZADITOR [Concomitant]
     Active Substance: KETOTIFEN FUMARATE
  28. OPHTHALMIC SOLUTION [Concomitant]

REACTIONS (1)
  - Palmar-plantar erythrodysaesthesia syndrome [None]
